FAERS Safety Report 8220042-8 (Version None)
Quarter: 2012Q1

REPORT INFORMATION
  Report Type: 
  Country: None (occurrence: None)
  Receive Date: 20120320
  Receipt Date: 20120306
  Transmission Date: 20120608
  Serious: Yes (Life-Threatening, Hospitalization, Other)
  Sender: FDA-Public Use
  Company Number: DE-RANBAXY-2012R1-53795

PATIENT
  Age: 74 Year
  Sex: Male
  Weight: 90 kg

DRUGS (5)
  1. LORZAAR PLUS, 50/12.5MG, FILMTABL, MSD [Suspect]
     Indication: PRODUCT USED FOR UNKNOWN INDICATION
     Dosage: 1 X 1 TABLET DAILY PER OS, BREAK: 21-27 SEP AND 01 OCT 2011
     Route: 048
     Dates: start: 19930101, end: 20111005
  2. TARGIN, 10/5MG, RETARDTABL, MUNDIPHARMA [Suspect]
     Indication: PRODUCT USED FOR UNKNOWN INDICATION
     Dosage: 1-2 PROLONGED-RELEASE TABLETS DAILY PER OS
     Route: 048
     Dates: start: 20110922, end: 20111030
  3. NOVALGIN, TRPF, SANOFI-AVENTIS [Suspect]
     Indication: PRODUCT USED FOR UNKNOWN INDICATION
     Dosage: 40 - 80 DROPS DAILY PER OS
     Route: 048
     Dates: start: 20110922, end: 20111002
  4. AMOXICILLIN [Suspect]
     Indication: PRODUCT USED FOR UNKNOWN INDICATION
     Dosage: 3 X 1 TABLET AT 1000MG DAILY PER OS
     Route: 048
     Dates: start: 20111005, end: 20111011
  5. NOVALGIN, 1000MG, AMP, SANOFI-AVENTIS [Suspect]
     Indication: PRODUCT USED FOR UNKNOWN INDICATION
     Dosage: UNK
     Route: 042
     Dates: start: 20110922, end: 20110923

REACTIONS (1)
  - RENAL FAILURE ACUTE [None]
